FAERS Safety Report 21841881 (Version 1)
Quarter: 2023Q1

REPORT INFORMATION
  Report Type: Report from Study
  Country: US (occurrence: US)
  Receive Date: 20230110
  Receipt Date: 20230110
  Transmission Date: 20230417
  Serious: Yes (Hospitalization)
  Sender: FDA-Public Use
  Company Number: US-GLAXOSMITHKLINE-US2023000302

PATIENT

DRUGS (1)
  1. NIRAPARIB [Suspect]
     Active Substance: NIRAPARIB
     Indication: Fallopian tube cancer
     Dosage: UNK, Z (TAKE 2 PILLS, WITH OR WITHOUT FOOD AT THE SAME TIME EACH DAY (PREFERABLY IN THE EVENING)
     Route: 048

REACTIONS (2)
  - Hospitalisation [Recovered/Resolved]
  - Nodule [Unknown]

NARRATIVE: CASE EVENT DATE: 20221218
